FAERS Safety Report 6931197-7 (Version None)
Quarter: 2010Q3

REPORT INFORMATION
  Report Type: 
  Country: None (occurrence: None)
  Receive Date: 20100818
  Receipt Date: 20100812
  Transmission Date: 20110219
  Serious: Yes (Hospitalization, Other)
  Sender: FDA-Public Use
  Company Number: US-AMGEN-QUU407786

PATIENT
  Sex: Female
  Weight: 74 kg

DRUGS (13)
  1. NPLATE [Suspect]
     Indication: IDIOPATHIC THROMBOCYTOPENIC PURPURA
     Route: 058
     Dates: start: 20090504, end: 20090615
  2. CORTICOSTEROIDS [Concomitant]
     Dates: start: 20051118
  3. DANAZOL [Concomitant]
     Dates: start: 20060123
  4. CYCLOSPORINE [Concomitant]
     Dates: start: 20080820
  5. CALCIUM WITH VITAMIN D [Concomitant]
  6. LASIX [Concomitant]
  7. SINEMET [Concomitant]
  8. SYNTHROID [Concomitant]
  9. COREG [Concomitant]
  10. UNSPECIFIED MEDICATION [Concomitant]
  11. PREDNISONE [Concomitant]
  12. EVISTA [Concomitant]
  13. POTASSIUM [Concomitant]

REACTIONS (10)
  - CARDIAC FAILURE CONGESTIVE [None]
  - CARDIAC MURMUR [None]
  - CAROTID ARTERY STENOSIS [None]
  - CONJUNCTIVAL HAEMORRHAGE [None]
  - CONTUSION [None]
  - DYSPNOEA [None]
  - ECCHYMOSIS [None]
  - HEART RATE IRREGULAR [None]
  - TRANSIENT ISCHAEMIC ATTACK [None]
  - WEIGHT DECREASED [None]
